FAERS Safety Report 13738217 (Version 1)
Quarter: 2017Q3

REPORT INFORMATION
  Report Type: Spontaneous
  Country: CZ (occurrence: CZ)
  Receive Date: 20170710
  Receipt Date: 20170710
  Transmission Date: 20171127
  Serious: Yes (Hospitalization, Other)
  Sender: FDA-Public Use
  Company Number: PHHY2017CZ098505

PATIENT
  Sex: Female

DRUGS (4)
  1. ANASTROZOL [Concomitant]
     Active Substance: ANASTROZOLE
     Indication: PRODUCT USED FOR UNKNOWN INDICATION
     Dosage: UNK
     Route: 065
  2. PERTUZUMAB. [Concomitant]
     Active Substance: PERTUZUMAB
     Indication: INVASIVE DUCTAL BREAST CARCINOMA
     Dosage: UNK
     Route: 065
     Dates: start: 20140319
  3. ZOLEDRONIC ACID [Suspect]
     Active Substance: ZOLEDRONIC ACID
     Indication: INVASIVE DUCTAL BREAST CARCINOMA
     Dosage: UNK UNK, QMO
     Route: 041
     Dates: start: 201506
  4. TRASTUZUMAB. [Concomitant]
     Active Substance: TRASTUZUMAB
     Indication: INVASIVE DUCTAL BREAST CARCINOMA
     Dosage: UNK
     Route: 065
     Dates: start: 20140319

REACTIONS (8)
  - Malignant neoplasm progression [Unknown]
  - Headache [Unknown]
  - Pneumonia [Unknown]
  - Metastases to bone [Unknown]
  - Vomiting [Unknown]
  - Metastases to central nervous system [Unknown]
  - Pain [Unknown]
  - Vertigo [Unknown]

NARRATIVE: CASE EVENT DATE: 201602
